FAERS Safety Report 14544343 (Version 1)
Quarter: 2018Q1

REPORT INFORMATION
  Report Type: Spontaneous
  Country: US (occurrence: US)
  Receive Date: 20180215
  Receipt Date: 20180215
  Transmission Date: 20180509
  Serious: Yes (Hospitalization)
  Sender: FDA-Public Use
  Company Number: None

PATIENT
  Age: 69 Year
  Sex: Male
  Weight: 99 kg

DRUGS (2)
  1. CHLORPHENIRAMINE/PHENYLEPHRINE [Suspect]
     Active Substance: CHLORPHENIRAMINE\PHENYLEPHRINE
     Indication: UPPER RESPIRATORY TRACT INFECTION
     Route: 048
     Dates: start: 20180206, end: 20180206
  2. DEXTROMETHORPHAN [Suspect]
     Active Substance: DEXTROMETHORPHAN
     Route: 048
     Dates: start: 20180206, end: 20180206

REACTIONS (9)
  - Rash [None]
  - Paraesthesia [None]
  - Angioedema [None]
  - Rash erythematous [None]
  - Lip swelling [None]
  - Hypoaesthesia [None]
  - Urticaria [None]
  - Wrong drug administered [None]
  - Pruritus [None]

NARRATIVE: CASE EVENT DATE: 20180206
